FAERS Safety Report 4468115-X (Version None)
Quarter: 2004Q4

REPORT INFORMATION
  Report Type: 
  Country: None (occurrence: None)
  Receive Date: 20041001
  Receipt Date: 20040915
  Transmission Date: 20050328
  Serious: Yes (Hospitalization)
  Sender: FDA-Public Use
  Company Number: 2004231585JP

PATIENT
  Age: 64 Year
  Sex: Male
  Weight: 54 kg

DRUGS (3)
  1. FARMORUBICIN (EPIRUBICIN HYDROCHLORIDE) POWDER, STERILE [Suspect]
     Indication: HEPATIC CANCER METASTATIC
     Dosage: 40 MG, WEEKLY, INTRA-ARTERIAL
     Route: 013
     Dates: start: 20020901, end: 20040310
  2. FLUOROURACIL [Suspect]
     Indication: HEPATIC CANCER METASTATIC
     Dosage: 500 MG, WEEKLY, INTRA-ARTERIAL
     Route: 013
     Dates: start: 20020901, end: 20040310
  3. MITOMYCIN [Suspect]
     Indication: HEPATIC CANCER METASTATIC
     Dosage: 4 MG, WEEKLY, INTRA-ARTERIAL
     Route: 013
     Dates: start: 20020901, end: 20040310

REACTIONS (5)
  - AORTIC DISSECTION [None]
  - BACK PAIN [None]
  - DISSOCIATION [None]
  - DRUG TOXICITY [None]
  - IATROGENIC INJURY [None]
